FAERS Safety Report 9484721 (Version 1)
Quarter: 2013Q3

REPORT INFORMATION
  Report Type: Spontaneous
  Country: CA (occurrence: CA)
  Receive Date: 20130828
  Receipt Date: 20130828
  Transmission Date: 20140515
  Serious: Yes (Other)
  Sender: FDA-Public Use
  Company Number: CA-AMGEN-KDL443714

PATIENT
  Age: 47 Year
  Sex: Female
  Weight: 76 kg

DRUGS (5)
  1. ENBREL [Suspect]
     Indication: PSORIATIC ARTHROPATHY
     Dosage: UNK UNK, QWK
     Route: 065
     Dates: start: 20100821
  2. HYDROXYCHLOROQUINE SULFATE [Concomitant]
  3. INSULIN [Concomitant]
  4. FOLIC ACID [Concomitant]
  5. SIMVASTATIN [Concomitant]

REACTIONS (4)
  - Vision blurred [Unknown]
  - Photophobia [Unknown]
  - Headache [Unknown]
  - Dizziness [Unknown]
